FAERS Safety Report 6779216-5 (Version None)
Quarter: 2010Q2

REPORT INFORMATION
  Report Type: 
  Country: None (occurrence: None)
  Receive Date: 20100618
  Receipt Date: 20100420
  Transmission Date: 20101027
  Serious: No
  Sender: FDA-Public Use
  Company Number: A0833879A

PATIENT
  Age: 50 Year
  Sex: Female

DRUGS (6)
  1. PROMACTA [Suspect]
     Indication: IDIOPATHIC THROMBOCYTOPENIC PURPURA
     Dosage: 50MG PER DAY
     Route: 048
     Dates: start: 20091203, end: 20091209
  2. ATENOLOL [Concomitant]
  3. FOLIC ACID [Concomitant]
  4. PREDNISONE [Concomitant]
  5. COUMADIN [Concomitant]
  6. ROMIPLOSTIM [Concomitant]

REACTIONS (2)
  - CYANOSIS [None]
  - PAIN IN EXTREMITY [None]
